FAERS Safety Report 5210654-8 (Version None)
Quarter: 2007Q1

REPORT INFORMATION
  Report Type: 
  Country: None (occurrence: None)
  Receive Date: 20070116
  Receipt Date: 20070116
  Transmission Date: 20070707
  Serious: Yes (Disabling)
  Sender: FDA-Public Use
  Company Number: None

PATIENT
  Sex: Male
  Weight: 62.5964 kg

DRUGS (9)
  1. FLEETS ORAL PHOPHOSODA PREP [Suspect]
     Indication: COLONOSCOPY
     Dosage: UNIT DOSE ONE DAY ORAL
     Route: 048
     Dates: start: 20060827
  2. LISINOPRIL [Concomitant]
  3. COREG [Concomitant]
  4. NORVASC [Concomitant]
  5. AMIODARONE HCL [Concomitant]
  6. COUMADIN [Concomitant]
  7. SPIRONOLACTONE [Concomitant]
  8. FUROSEMIDE [Concomitant]
  9. POTASSIUM CHLORIDE [Concomitant]

REACTIONS (1)
  - ADVERSE EVENT [None]
